FAERS Safety Report 6202325-6 (Version None)
Quarter: 2009Q2

REPORT INFORMATION
  Report Type: 
  Country: None (occurrence: None)
  Receive Date: 20090526
  Receipt Date: 20090519
  Transmission Date: 20091009
  Serious: Yes (Hospitalization)
  Sender: FDA-Public Use
  Company Number: US-PFIZER INC-2005118006

PATIENT
  Sex: Male
  Weight: 59.87 kg

DRUGS (11)
  1. MARAVIROC [Suspect]
     Indication: HIV INFECTION
     Dosage: UNK
     Route: 048
     Dates: start: 20050602, end: 20071212
  2. OXYCODONE HCL [Concomitant]
     Route: 065
     Dates: start: 20020311
  3. DAPSONE [Concomitant]
     Route: 065
     Dates: start: 20021212
  4. VORICONAZOLE [Concomitant]
     Route: 065
     Dates: start: 20021212
  5. CELECOXIB [Concomitant]
     Route: 065
     Dates: start: 20030901
  6. WARFARIN SODIUM [Concomitant]
     Route: 065
     Dates: start: 20000101, end: 20050819
  7. DALTEPARIN SODIUM [Concomitant]
     Route: 065
     Dates: start: 20050819
  8. AZITHROMYCIN [Concomitant]
     Route: 065
     Dates: start: 20030101
  9. PSEUDOEPHEDRINE HCL [Concomitant]
     Route: 065
     Dates: start: 20050817
  10. DOCUSATE SODIUM [Concomitant]
     Route: 065
     Dates: start: 20050713
  11. ACETAMINOPHEN [Concomitant]
     Route: 065
     Dates: start: 20050713

REACTIONS (2)
  - PNEUMOCOCCAL SEPSIS [None]
  - PNEUMONIA [None]
